FAERS Safety Report 21921072 (Version 1)
Quarter: 2023Q1

REPORT INFORMATION
  Report Type: Spontaneous
  Country: US (occurrence: US)
  Receive Date: 20230127
  Receipt Date: 20230127
  Transmission Date: 20230418
  Serious: Yes (Death, Life-Threatening, Hospitalization, Other)
  Sender: FDA-Public Use
  Company Number: US-AMGEN-USASP2023010779

PATIENT
  Age: 2 Year
  Sex: Female

DRUGS (13)
  1. FILGRASTIM [Suspect]
     Active Substance: FILGRASTIM
     Indication: Neutropenia
     Dosage: UNK
     Route: 065
  2. CASPOFUNGIN [Concomitant]
     Active Substance: CASPOFUNGIN
     Indication: Antifungal prophylaxis
  3. PREDNISOLONE [Concomitant]
     Active Substance: PREDNISOLONE
  4. VINCRISTINE [Concomitant]
     Active Substance: VINCRISTINE
  5. DAUNORUBICIN [Concomitant]
     Active Substance: DAUNORUBICIN
  6. AMPHOTERICIN B [Concomitant]
     Active Substance: AMPHOTERICIN B
  7. VORICONAZOLE [Concomitant]
     Active Substance: VORICONAZOLE
  8. PEGASPARGASE [Concomitant]
     Active Substance: PEGASPARGASE
  9. CYCLOPHOSPHAMIDE [Concomitant]
     Active Substance: CYCLOPHOSPHAMIDE
  10. MEROPENEM [Concomitant]
     Active Substance: MEROPENEM
  11. VANCOMYCIN [Concomitant]
     Active Substance: VANCOMYCIN
  12. CYTARABINE [Concomitant]
     Active Substance: CYTARABINE
  13. MERCAPTOPURINE [Concomitant]
     Active Substance: MERCAPTOPURINE

REACTIONS (11)
  - Cardiac arrest [Fatal]
  - Disseminated trichosporonosis [Fatal]
  - Acute respiratory distress syndrome [Unknown]
  - Abdominal distension [Unknown]
  - Hypotension [Unknown]
  - Pulmonary haemorrhage [Unknown]
  - Cardiac valve vegetation [Unknown]
  - Hypoxia [Unknown]
  - Hypercapnia [Unknown]
  - Anisocoria [Unknown]
  - General physical health deterioration [Unknown]
